FAERS Safety Report 4810913-4 (Version None)
Quarter: 2005Q4

REPORT INFORMATION
  Report Type: 
  Country: None (occurrence: None)
  Receive Date: 20051025
  Receipt Date: 20051010
  Transmission Date: 20060501
  Serious: Yes (Hospitalization)
  Sender: FDA-Public Use
  Company Number: 218495

PATIENT
  Age: 78 Year
  Sex: Female
  Weight: 45.4 kg

DRUGS (1)
  1. AVASTIN [Suspect]
     Indication: COLORECTAL CANCER METASTATIC
     Dosage: 5 MG/KG, Q2W, INTRAVENOUS
     Route: 042
     Dates: start: 20040423

REACTIONS (6)
  - ANAEMIA [None]
  - ASTHENIA [None]
  - FATIGUE [None]
  - ORAL INTAKE REDUCED [None]
  - PNEUMONIA [None]
  - THROMBOCYTOPENIA [None]
